FAERS Safety Report 8524951-1 (Version None)
Quarter: 2012Q3

REPORT INFORMATION
  Report Type: 
  Country: None (occurrence: None)
  Receive Date: 20120720
  Receipt Date: 20120713
  Transmission Date: 20120928
  Serious: Yes (Disabling, Other)
  Sender: FDA-Public Use
  Company Number: GB-TEVA-348146ISR

PATIENT
  Sex: Female
  Weight: 50 kg

DRUGS (8)
  1. ALENDRONATE SODIUM [Concomitant]
  2. PREDNISOLONE [Suspect]
     Indication: SARCOIDOSIS
     Dosage: 10 MG
     Route: 048
     Dates: start: 20051120
  3. CARBAMAZEPINE [Suspect]
     Indication: EPILEPSY
     Dosage: 150MG
     Route: 048
     Dates: start: 20111109
  4. AZATHIOPRINE [Concomitant]
  5. LAMOTRIGINE [Concomitant]
  6. DICLOFENAC [Suspect]
     Indication: OSTEOPOROSIS
     Dosage: 150MG
     Route: 048
     Dates: start: 20051110
  7. SIMVASTATIN [Concomitant]
  8. OMEPRAZOLE MAGNESIUM [Concomitant]

REACTIONS (5)
  - ARTHRALGIA [None]
  - OSTEOPOROSIS [None]
  - PULMONARY SARCOIDOSIS [None]
  - GAIT DISTURBANCE [None]
  - EPILEPSY [None]
